FAERS Safety Report 9776070 (Version 1)
Quarter: 2013Q4

REPORT INFORMATION
  Report Type: Spontaneous
  Country: US (occurrence: US)
  Receive Date: 20131220
  Receipt Date: 20131220
  Transmission Date: 20140711
  Serious: Yes (Life-Threatening, Hospitalization)
  Sender: FDA-Public Use
  Company Number: US-BAYER-2013-152516

PATIENT
  Age: 36 Year
  Sex: Male

DRUGS (1)
  1. SORAFENIB (RAF KINASE INHIBITOR) [Suspect]
     Indication: HEPATOCELLULAR CARCINOMA
     Dosage: UNK

REACTIONS (3)
  - Upper gastrointestinal haemorrhage [Recovered/Resolved]
  - Metastases to gastrointestinal tract [Not Recovered/Not Resolved]
  - Gastric fistula [None]
